FAERS Safety Report 18548740 (Version 1)
Quarter: 2020Q4

REPORT INFORMATION
  Report Type: Report from Study
  Country: US (occurrence: US)
  Receive Date: 20201125
  Receipt Date: 20201125
  Transmission Date: 20210114
  Serious: Yes (Death, Disabling)
  Sender: FDA-Public Use
  Company Number: US-BAUSCH-BL-2020-034339

PATIENT
  Age: 83 Year
  Sex: Male

DRUGS (1)
  1. XIFAXAN [Suspect]
     Active Substance: RIFAXIMIN
     Indication: HEPATIC CIRRHOSIS
     Route: 048

REACTIONS (3)
  - Death [Fatal]
  - General physical health deterioration [Unknown]
  - Gait inability [Unknown]

NARRATIVE: CASE EVENT DATE: 202007
